FAERS Safety Report 13159600 (Version 1)
Quarter: 2017Q1

REPORT INFORMATION
  Report Type: Spontaneous
  Country: US (occurrence: US)
  Receive Date: 20170127
  Receipt Date: 20170127
  Transmission Date: 20170428
  Serious: Yes (Hospitalization)
  Sender: FDA-Public Use
  Company Number: US-ALKERMES INC.-ALK-2017-000292

PATIENT
  Sex: Male

DRUGS (1)
  1. VIVITROL [Suspect]
     Active Substance: NALTREXONE
     Indication: PRODUCT USED FOR UNKNOWN INDICATION
     Dosage: 380 MG, QMO
     Route: 030

REACTIONS (8)
  - Psychomotor hyperactivity [Unknown]
  - Insomnia [Unknown]
  - Drug abuse [Unknown]
  - Syncope [Recovering/Resolving]
  - Diarrhoea [Recovering/Resolving]
  - Haematemesis [Recovering/Resolving]
  - Blood pressure increased [Not Recovered/Not Resolved]
  - Feeling abnormal [Unknown]
